FAERS Safety Report 8989066 (Version 1)
Quarter: 2012Q4

REPORT INFORMATION
  Report Type: Spontaneous
  Country: US (occurrence: None)
  Receive Date: 20121224
  Receipt Date: 20121224
  Transmission Date: 20130627
  Serious: No
  Sender: FDA-Public Use
  Company Number: None

PATIENT
  Age: 26 Year
  Sex: Male
  Weight: 130 kg

DRUGS (1)
  1. METHADONE [Suspect]
     Dosage: 10   bid  po
     Route: 048

REACTIONS (6)
  - Cellulitis [None]
  - Depressed level of consciousness [None]
  - Oxygen saturation decreased [None]
  - Treatment noncompliance [None]
  - Agitation [None]
  - Vomiting [None]
